FAERS Safety Report 4524634-9 (Version None)
Quarter: 2004Q4

REPORT INFORMATION
  Report Type: 
  Country: None (occurrence: None)
  Receive Date: 20041117
  Receipt Date: 20030616
  Transmission Date: 20050328
  Serious: Yes (Other)
  Sender: FDA-Public Use
  Company Number: C2003-1510.01

PATIENT
  Age: 52 Year
  Sex: Female

DRUGS (4)
  1. CLOZAPINE [Suspect]
     Indication: SCHIZOAFFECTIVE DISORDER
     Dates: start: 20000101
  2. TRAZODONE HCL [Concomitant]
  3. LORAZEPAM [Concomitant]
  4. DIVALPROEX SODIUM [Concomitant]

REACTIONS (1)
  - LEUKOCYTOSIS [None]
